FAERS Safety Report 5060522-X (Version None)
Quarter: 2006Q2

REPORT INFORMATION
  Report Type: 
  Country: None (occurrence: None)
  Receive Date: 20060630
  Receipt Date: 20060210
  Transmission Date: 20061013
  Serious: Yes (Hospitalization)
  Sender: FDA-Public Use
  Company Number: VISP-PR-0602S-0076

PATIENT
  Age: 75 Year
  Sex: Male
  Weight: 73.0291 kg

DRUGS (9)
  1. VISIPAQUE [Suspect]
     Indication: CARDIAC FAILURE CONGESTIVE
     Dosage: 95 ML, SINGLE DOSE, I.V.
     Route: 042
     Dates: start: 20060203, end: 20060203
  2. VISIPAQUE [Suspect]
     Indication: CHRONIC OBSTRUCTIVE PULMONARY DISEASE
     Dosage: 95 ML, SINGLE DOSE, I.V.
     Route: 042
     Dates: start: 20060203, end: 20060203
  3. NEPHROCAPS [Concomitant]
  4. HYDRALAZINE HCL [Concomitant]
  5. FOLIC ACID [Concomitant]
  6. SALBUTAMOL (ALBUTEROL INHALER) [Concomitant]
  7. LEVOTHYROXINE SODIUM [Concomitant]
  8. ZOCOR [Concomitant]
  9. METOPROLOL [Concomitant]

REACTIONS (1)
  - ANAPHYLACTOID REACTION [None]
